FAERS Safety Report 7991062-3 (Version None)
Quarter: 2011Q4

REPORT INFORMATION
  Report Type: 
  Country: None (occurrence: None)
  Receive Date: 20111219
  Receipt Date: 20111215
  Transmission Date: 20120403
  Serious: Yes (Other)
  Sender: FDA-Public Use
  Company Number: US-ROCHE-791923

PATIENT
  Sex: Female
  Weight: 86.26 kg

DRUGS (6)
  1. ACCUTANE [Suspect]
  2. PAXIL [Concomitant]
     Indication: DEPRESSION
  3. XANAX [Concomitant]
     Indication: ANXIETY
  4. PAXIL [Concomitant]
     Indication: ANXIETY
  5. XANAX [Concomitant]
     Indication: DEPRESSION
  6. ACCUTANE [Suspect]
     Indication: ACNE
     Route: 065
     Dates: start: 19950101, end: 19970101

REACTIONS (5)
  - PANIC ATTACK [None]
  - CROHN'S DISEASE [None]
  - INFLAMMATORY BOWEL DISEASE [None]
  - DEPRESSION [None]
  - SUICIDAL IDEATION [None]
